FAERS Safety Report 6736522-8 (Version None)
Quarter: 2010Q2

REPORT INFORMATION
  Report Type: 
  Country: None (occurrence: None)
  Receive Date: 20100519
  Receipt Date: 20100504
  Transmission Date: 20101027
  Serious: Yes (Other)
  Sender: FDA-Public Use
  Company Number: 2010US-33595

PATIENT
  Age: 82 Year
  Sex: Female

DRUGS (2)
  1. METFORMIN HCL [Suspect]
     Indication: TYPE 2 DIABETES MELLITUS
     Dosage: 1 G. BD
  2. FAMOTIDINE [Suspect]
     Indication: GASTRITIS

REACTIONS (6)
  - AMNESIA [None]
  - COGNITIVE DISORDER [None]
  - HAEMOGLOBIN DECREASED [None]
  - MUSCULAR WEAKNESS [None]
  - SUBACUTE COMBINED CORD DEGENERATION [None]
  - VITAMIN B COMPLEX DEFICIENCY [None]
